FAERS Safety Report 7977252-4 (Version None)
Quarter: 2011Q4

REPORT INFORMATION
  Report Type: 
  Country: None (occurrence: None)
  Receive Date: 20111213
  Receipt Date: 20111115
  Transmission Date: 20120403
  Serious: No
  Sender: FDA-Public Use
  Company Number: US-AMGEN-USASP2011041839

PATIENT
  Sex: Female
  Weight: 78.458 kg

DRUGS (1)
  1. ENBREL [Suspect]
     Indication: EPISCLERITIS
     Dosage: 50 MG, QWK
     Route: 058
     Dates: start: 20070530

REACTIONS (1)
  - MIGRAINE [None]
